FAERS Safety Report 10560556 (Version 2)
Quarter: 2015Q4

REPORT INFORMATION
  Report Type: Spontaneous
  Country: US (occurrence: US)
  Receive Date: 20141103
  Receipt Date: 20151015
  Transmission Date: 20160304
  Serious: No
  Sender: FDA-Public Use
  Company Number: US-SA-2014SA103080

PATIENT
  Age: 52 Year
  Sex: Female
  Weight: 105 kg

DRUGS (11)
  1. LUMIZYME [Suspect]
     Active Substance: ALGLUCOSIDASE ALFA
     Indication: GLYCOGEN STORAGE DISEASE TYPE II
     Route: 041
     Dates: start: 20131018
  2. ALTEPLASE [Concomitant]
     Active Substance: ALTEPLASE
  3. PSEUDOEPHEDRINE HYDROCHLORIDE/DIPHENHYDRAMINE HYDROCHLORIDE/PARACETAMOL [Concomitant]
  4. NORMAL SALINE [Concomitant]
     Active Substance: SODIUM CHLORIDE
  5. ACTOS [Concomitant]
     Active Substance: PIOGLITAZONE HYDROCHLORIDE
  6. METFORMIN [Concomitant]
     Active Substance: METFORMIN HYDROCHLORIDE
  7. LUMIZYME [Suspect]
     Active Substance: ALGLUCOSIDASE ALFA
     Indication: GLYCOGEN STORAGE DISEASE TYPE II
     Route: 041
     Dates: start: 20131018
  8. HEPARIN [Concomitant]
     Active Substance: HEPARIN SODIUM
  9. EPINEPHRINE. [Concomitant]
     Active Substance: EPINEPHRINE
  10. HYDROCODONE/PARACETAMOL [Concomitant]
  11. ONGLYZA [Concomitant]
     Active Substance: SAXAGLIPTIN HYDROCHLORIDE

REACTIONS (1)
  - Arthropod bite [Recovered/Resolved]

NARRATIVE: CASE EVENT DATE: 201407
